FAERS Safety Report 20613770 (Version 2)
Quarter: 2022Q2

REPORT INFORMATION
  Report Type: Spontaneous
  Country: PL (occurrence: PL)
  Receive Date: 20220319
  Receipt Date: 20220518
  Transmission Date: 20220721
  Serious: Yes (Other)
  Sender: FDA-Public Use
  Company Number: PL-NOVARTISPH-NVSC2022PL058320

PATIENT

DRUGS (1)
  1. BEOVU [Suspect]
     Active Substance: BROLUCIZUMAB-DBLL
     Indication: Neovascular age-related macular degeneration
     Dosage: UNK
     Route: 065

REACTIONS (5)
  - Retinal exudates [Not Recovered/Not Resolved]
  - Uveitis [Unknown]
  - Retinal vascular occlusion [Unknown]
  - Visual acuity reduced [Unknown]
  - Eye pain [Unknown]
